FAERS Safety Report 7332092-4 (Version None)
Quarter: 2011Q1

REPORT INFORMATION
  Report Type: 
  Country: None (occurrence: None)
  Receive Date: 20110304
  Receipt Date: 20110302
  Transmission Date: 20110831
  Serious: Yes (Life-Threatening, Hospitalization)
  Sender: FDA-Public Use
  Company Number: A0913732A

PATIENT
  Sex: Female

DRUGS (4)
  1. HEART MEDICATION [Concomitant]
  2. ALLI [Suspect]
     Route: 048
     Dates: start: 20070101
  3. ASPIRIN [Concomitant]
  4. MULTI-VITAMIN [Concomitant]

REACTIONS (5)
  - CHEST PAIN [None]
  - HEART RATE INCREASED [None]
  - ARTERIAL OCCLUSIVE DISEASE [None]
  - ANGINA PECTORIS [None]
  - DYSPNOEA [None]
